FAERS Safety Report 12940497 (Version 4)
Quarter: 2018Q2

REPORT INFORMATION
  Report Type: Report from Study
  Country: US (occurrence: US)
  Receive Date: 20161114
  Receipt Date: 20180607
  Transmission Date: 20180711
  Serious: Yes (Hospitalization)
  Sender: FDA-Public Use
  Company Number: US-ACTELION-A-US2016-145260

PATIENT
  Age: 61 Year
  Sex: Female

DRUGS (23)
  1. MULTIVITAMIN [Concomitant]
     Active Substance: VITAMINS
  2. CORTISONE [Suspect]
     Active Substance: CORTISONE\HYDROCORTISONE
     Indication: PRODUCT USED FOR UNKNOWN INDICATION
     Route: 065
  3. PROGRAF [Concomitant]
     Active Substance: TACROLIMUS\TACROLIMUS ANHYDROUS
  4. SPIRONOLACTONE. [Concomitant]
     Active Substance: SPIRONOLACTONE
  5. ADVAIR HFA [Concomitant]
     Active Substance: FLUTICASONE PROPIONATE\SALMETEROL XINAFOATE
  6. OXYGEN. [Concomitant]
     Active Substance: OXYGEN
     Route: 055
  7. TEMAZEPAM. [Concomitant]
     Active Substance: TEMAZEPAM
  8. LORAZEPAM. [Concomitant]
     Active Substance: LORAZEPAM
  9. CEFDINIR. [Concomitant]
     Active Substance: CEFDINIR
  10. HUMALOG [Concomitant]
     Active Substance: INSULIN LISPRO
  11. ALBUTEROL. [Concomitant]
     Active Substance: ALBUTEROL
  12. ELAVIL [Concomitant]
     Active Substance: AMITRIPTYLINE HYDROCHLORIDE
  13. GABAPENTIN. [Concomitant]
     Active Substance: GABAPENTIN
  14. OPSUMIT [Suspect]
     Active Substance: MACITENTAN
     Indication: PULMONARY ARTERIAL HYPERTENSION
     Dosage: 10 MG, QD
     Route: 048
     Dates: start: 201606
  15. NADOLOL. [Concomitant]
     Active Substance: NADOLOL
  16. ACETAMINOPHEN W/HYDROCODONE [Concomitant]
     Active Substance: ACETAMINOPHEN\HYDROCODONE
  17. MYFORTIC [Concomitant]
     Active Substance: MYCOPHENOLATE SODIUM
  18. VALGANCICLOVIR. [Concomitant]
     Active Substance: VALGANCICLOVIR
  19. AMITRIPTYLINE [Concomitant]
     Active Substance: AMITRIPTYLINE
  20. FUROSEMIDE. [Concomitant]
     Active Substance: FUROSEMIDE
  21. INCRUSE ELLIPTA [Concomitant]
     Active Substance: UMECLIDINIUM BROMIDE
  22. ATOVAQUONE. [Concomitant]
     Active Substance: ATOVAQUONE
  23. MYCOPHENOLATE [Concomitant]
     Active Substance: MYCOPHENOLIC ACID

REACTIONS (14)
  - Hepatic failure [Recovered/Resolved]
  - Pneumonia [Recovering/Resolving]
  - Weight decreased [Unknown]
  - Diarrhoea [Recovered/Resolved]
  - Weight increased [Recovering/Resolving]
  - Malaise [Unknown]
  - Fluid retention [Recovering/Resolving]
  - Dependence on oxygen therapy [Unknown]
  - Liver transplant [Recovered/Resolved]
  - Dyspnoea [Unknown]
  - Oesophageal variceal ligation [Unknown]
  - Blood count abnormal [Unknown]
  - Vomiting [Recovered/Resolved]
  - Pyrexia [Recovering/Resolving]

NARRATIVE: CASE EVENT DATE: 201609
